FAERS Safety Report 6307387-3 (Version None)
Quarter: 2009Q3

REPORT INFORMATION
  Report Type: 
  Country: None (occurrence: None)
  Receive Date: 20090813
  Receipt Date: 20090806
  Transmission Date: 20100115
  Serious: Yes (Hospitalization)
  Sender: FDA-Public Use
  Company Number: FR-JNJFOC-20090801844

PATIENT
  Age: 40 Year
  Sex: Male

DRUGS (18)
  1. TAVANIC [Suspect]
     Indication: DRUG USE FOR UNKNOWN INDICATION
     Route: 042
  2. TIENAM [Suspect]
     Indication: DRUG USE FOR UNKNOWN INDICATION
     Route: 042
  3. INDOCOLLYRE [Suspect]
     Indication: ULCERATIVE KERATITIS
     Route: 047
  4. CIFLOXAN [Suspect]
     Indication: ULCERATIVE KERATITIS
     Route: 047
  5. REFRESH [Suspect]
     Indication: ULCERATIVE KERATITIS
     Route: 047
  6. ATROPINE [Suspect]
     Indication: ULCERATIVE KERATITIS
     Route: 047
  7. MIDRIATICUM [Suspect]
     Indication: ULCERATIVE KERATITIS
     Route: 047
  8. CHIBRO-CADRON [Concomitant]
     Indication: ULCERATIVE KERATITIS
     Route: 047
  9. CELLUVISC [Concomitant]
     Indication: ULCERATIVE KERATITIS
     Route: 047
  10. VITAMINE A [Concomitant]
     Indication: ULCERATIVE KERATITIS
     Route: 047
  11. FUNGIZONE [Concomitant]
     Indication: ANAL FUNGAL INFECTION
     Route: 048
  12. PEVARYL G [Concomitant]
     Indication: ANAL FUNGAL INFECTION
     Route: 061
  13. VIRLIX [Concomitant]
     Indication: ANAL FUNGAL INFECTION
     Route: 048
  14. CIFLOX COLLYRE [Concomitant]
     Indication: ULCERATIVE KERATITIS
     Route: 047
  15. LAMISIL [Concomitant]
     Indication: FUNGAL INFECTION
     Route: 003
  16. OXACILLIN [Concomitant]
     Indication: FUNGAL INFECTION
     Route: 065
  17. TOBREX [Concomitant]
     Indication: ULCERATIVE KERATITIS
     Route: 047
  18. KETODERM [Concomitant]
     Indication: FUNGAL INFECTION
     Route: 065

REACTIONS (6)
  - ASTHENIA [None]
  - EOSINOPHILIA [None]
  - GRANULOCYTOSIS [None]
  - PYREXIA [None]
  - RASH MACULO-PAPULAR [None]
  - TOXIC SKIN ERUPTION [None]
